FAERS Safety Report 16828028 (Version 5)
Quarter: 2020Q2

REPORT INFORMATION
  Report Type: Spontaneous
  Country: GR (occurrence: GR)
  Receive Date: 20190919
  Receipt Date: 20200608
  Transmission Date: 20200713
  Serious: Yes (Death, Life-Threatening, Hospitalization, Other)
  Sender: FDA-Public Use
  Company Number: GR-PFIZER INC-2019388512

PATIENT
  Age: 66 Year
  Sex: Female
  Weight: 105 kg

DRUGS (5)
  1. OXALIPLATIN. [Concomitant]
     Active Substance: OXALIPLATIN
     Indication: ADENOCARCINOMA OF COLON
     Dosage: 130 MG/M2, UNK ON DAY 1, IN A 21 DAY CYCLE; PART OF CAPOX CHEMOTHERAPY REGIMEN
     Route: 065
  2. OXALIPLATIN. [Concomitant]
     Active Substance: OXALIPLATIN
     Indication: COLORECTAL CANCER
  3. FILGRASTIM [Suspect]
     Active Substance: FILGRASTIM
     Indication: PANCYTOPENIA
     Dosage: UNK
  4. CAPECITABINE. [Suspect]
     Active Substance: CAPECITABINE
     Indication: COLORECTAL CANCER
  5. CAPECITABINE. [Suspect]
     Active Substance: CAPECITABINE
     Indication: ADENOCARCINOMA OF COLON
     Dosage: 1000 MG/M2, 2X/DAY FROM DAY 1- DAY 14, IN A 21 DAY CYCLE; PART OF CAPOX CHEMOTHERAPY REGIMEN

REACTIONS (7)
  - Pancytopenia [Fatal]
  - Product use in unapproved indication [Unknown]
  - Drug ineffective [Fatal]
  - Bone marrow failure [Recovered/Resolved]
  - Cardiotoxicity [Fatal]
  - Nausea [Not Recovered/Not Resolved]
  - Off label use [Unknown]

NARRATIVE: CASE EVENT DATE: 20181022
